FAERS Safety Report 19708928 (Version 2)
Quarter: 2021Q3

REPORT INFORMATION
  Report Type: Report from Study
  Country: US (occurrence: US)
  Receive Date: 20210816
  Receipt Date: 20210909
  Transmission Date: 20211014
  Serious: Yes (Hospitalization)
  Sender: FDA-Public Use
  Company Number: US-BIOMARINAP-US-2021-137948

PATIENT
  Age: 5 Year
  Sex: Female
  Weight: 19.9 kg

DRUGS (8)
  1. DIASTAT [Concomitant]
     Active Substance: DIAZEPAM
     Indication: EPILEPTIC ENCEPHALOPATHY
     Dates: start: 20200107
  2. VITAMIN B?6 [Concomitant]
     Active Substance: PYRIDOXINE
     Indication: EPILEPTIC ENCEPHALOPATHY
     Dates: start: 20210323
  3. CLOBAZAM. [Concomitant]
     Active Substance: CLOBAZAM
     Indication: EPILEPTIC ENCEPHALOPATHY
     Dates: start: 20210427
  4. KEPPRA [Concomitant]
     Active Substance: LEVETIRACETAM
     Indication: EPILEPTIC ENCEPHALOPATHY
     Dates: start: 20210121
  5. RISPERDAL [Concomitant]
     Active Substance: RISPERIDONE
     Indication: EPILEPTIC ENCEPHALOPATHY
     Dates: start: 20200415
  6. BRINEURA [Suspect]
     Active Substance: CERLIPONASE ALFA
     Indication: NEURONAL CEROID LIPOFUSCINOSIS
     Dosage: 300 MILLIGRAM, QOW
     Route: 020
     Dates: start: 20210722
  7. PERIACTIN [Concomitant]
     Active Substance: CYPROHEPTADINE HYDROCHLORIDE
     Indication: FAILURE TO THRIVE
     Dates: start: 20210427
  8. DEPAKOTE [Concomitant]
     Active Substance: DIVALPROEX SODIUM
     Indication: EPILEPTIC ENCEPHALOPATHY
     Dates: start: 20210421

REACTIONS (1)
  - Gaze palsy [Recovered/Resolved]

NARRATIVE: CASE EVENT DATE: 20210722
